FAERS Safety Report 4817171-5 (Version None)
Quarter: 2005Q4

REPORT INFORMATION
  Report Type: 
  Country: None (occurrence: None)
  Receive Date: 20051101
  Receipt Date: 20051025
  Transmission Date: 20060501
  Serious: Yes (Hospitalization)
  Sender: FDA-Public Use
  Company Number: 2005CG01777

PATIENT
  Age: 36 Year
  Sex: Female

DRUGS (5)
  1. MOPRAL [Suspect]
     Route: 048
     Dates: start: 20050809, end: 20050811
  2. MORPHINE [Suspect]
     Dates: start: 20050809, end: 20050812
  3. ROCEPHIN [Concomitant]
     Dates: start: 20050809, end: 20050809
  4. ACETAMINOPHEN [Concomitant]
     Route: 042
     Dates: start: 20050809
  5. TRIATEC [Concomitant]

REACTIONS (1)
  - ACUTE GENERALISED EXANTHEMATOUS PUSTULOSIS [None]
